FAERS Safety Report 15616504 (Version 1)
Quarter: 2018Q4

REPORT INFORMATION
  Report Type: Spontaneous
  Country: US (occurrence: US)
  Receive Date: 20181114
  Receipt Date: 20181114
  Transmission Date: 20190205
  Serious: No
  Sender: FDA-Public Use
  Company Number: US-009507513-1810USA013781

PATIENT
  Age: 72 Year
  Sex: Male

DRUGS (4)
  1. ASPIRIN. [Concomitant]
     Active Substance: ASPIRIN
  2. WARFARIN [Concomitant]
     Active Substance: WARFARIN
  3. JANUVIA [Suspect]
     Active Substance: SITAGLIPTIN PHOSPHATE
     Indication: TYPE 2 DIABETES MELLITUS
     Dosage: 0.5 DOSAGE FORM, QD
     Route: 048
  4. INSULIN [Concomitant]
     Active Substance: INSULIN NOS

REACTIONS (2)
  - Wrong technique in product usage process [Unknown]
  - Blood glucose increased [Not Recovered/Not Resolved]

NARRATIVE: CASE EVENT DATE: 201810
